FAERS Safety Report 15313624 (Version 1)
Quarter: 2018Q3

REPORT INFORMATION
  Report Type: Report from Study
  Country: US (occurrence: US)
  Receive Date: 20180824
  Receipt Date: 20180824
  Transmission Date: 20181010
  Serious: Yes (Other)
  Sender: FDA-Public Use
  Company Number: US-ROCHE-2173251

PATIENT
  Sex: Male

DRUGS (2)
  1. ESBRIET [Suspect]
     Active Substance: PIRFENIDONE
     Indication: IDIOPATHIC PULMONARY FIBROSIS
     Route: 065
  2. OXYGEN. [Concomitant]
     Active Substance: OXYGEN
     Route: 065

REACTIONS (3)
  - Gait disturbance [Unknown]
  - Dysstasia [Unknown]
  - Arterial occlusive disease [Unknown]
